FAERS Safety Report 8520636-6 (Version None)
Quarter: 2012Q3

REPORT INFORMATION
  Report Type: 
  Country: None (occurrence: None)
  Receive Date: 20120713
  Receipt Date: 20120713
  Transmission Date: 20120928
  Serious: Yes (Hospitalization, Other)
  Sender: FDA-Public Use
  Company Number: None

PATIENT
  Sex: Female
  Weight: 92.5338 kg

DRUGS (1)
  1. CELEXA [Suspect]
     Indication: ANXIETY
     Dosage: 20 MG DAILY
     Dates: start: 20110101, end: 20120101

REACTIONS (2)
  - PALPITATIONS [None]
  - FEELING COLD [None]
